FAERS Safety Report 5826639-4 (Version None)
Quarter: 2008Q3

REPORT INFORMATION
  Report Type: 
  Country: None (occurrence: None)
  Receive Date: 20080730
  Receipt Date: 20080725
  Transmission Date: 20090109
  Serious: Yes (Death, Hospitalization)
  Sender: FDA-Public Use
  Company Number: JP-JNJFOC-20080706564

PATIENT
  Age: 70 Year
  Sex: Male

DRUGS (1)
  1. ITRIZOLE [Suspect]
     Indication: ONYCHOMYCOSIS
     Route: 048

REACTIONS (2)
  - DRUG ERUPTION [None]
  - SEPSIS [None]
